FAERS Safety Report 4646057-4 (Version None)
Quarter: 2005Q2

REPORT INFORMATION
  Report Type: 
  Country: None (occurrence: None)
  Receive Date: 20050425
  Receipt Date: 20050412
  Transmission Date: 20051028
  Serious: Yes (Other)
  Sender: FDA-Public Use
  Company Number: HQWYE541130MAR05

PATIENT
  Age: 92 Year
  Sex: Male

DRUGS (1)
  1. CORDARONE [Suspect]
     Indication: VENTRICULAR EXTRASYSTOLES
     Dates: start: 20020401

REACTIONS (6)
  - DERMATITIS EXFOLIATIVE [None]
  - LYMPHOPENIA [None]
  - PRURIGO [None]
  - PSEUDO LYMPHOMA [None]
  - RASH PAPULAR [None]
  - WHITE BLOOD CELL DISORDER [None]
